FAERS Safety Report 9808122 (Version 2)
Quarter: 2014Q1

REPORT INFORMATION
  Report Type: Spontaneous
  Country: US (occurrence: US)
  Receive Date: 20140110
  Receipt Date: 20140213
  Transmission Date: 20141002
  Serious: No
  Sender: FDA-Public Use
  Company Number: US-ROXANE LABORATORIES, INC.-2014-RO-00014RO

PATIENT
  Sex: Female

DRUGS (3)
  1. METHOTREXATE [Suspect]
     Indication: INTESTINAL STENOSIS
  2. PREDNISONE [Suspect]
     Indication: INTESTINAL STENOSIS
  3. CIMZIA [Suspect]
     Indication: INTESTINAL STENOSIS

REACTIONS (2)
  - Therapeutic product ineffective for unapproved indication [Unknown]
  - Product quality issue [Unknown]
